FAERS Safety Report 12565372 (Version 1)
Quarter: 2016Q3

REPORT INFORMATION
  Report Type: Spontaneous
  Country: US (occurrence: US)
  Receive Date: 20160718
  Receipt Date: 20160718
  Transmission Date: 20161109
  Serious: No
  Sender: FDA-Public Use
  Company Number: US-ELI_LILLY_AND_COMPANY-US201607000873

PATIENT
  Sex: Female

DRUGS (1)
  1. FORTEO [Suspect]
     Active Substance: TERIPARATIDE
     Indication: OSTEOPOROSIS
     Dosage: UNK, QD
     Route: 065
     Dates: start: 20160430

REACTIONS (7)
  - Fall [Unknown]
  - Stress [Unknown]
  - Anxiety [Unknown]
  - Stress fracture [Unknown]
  - Asthenia [Unknown]
  - Depressed mood [Unknown]
  - Pain [Unknown]
